FAERS Safety Report 5229081-2 (Version None)
Quarter: 2007Q1

REPORT INFORMATION
  Report Type: 
  Country: None (occurrence: None)
  Receive Date: 20070131
  Receipt Date: 20070123
  Transmission Date: 20070707
  Serious: Yes (Hospitalization, Other)
  Sender: FDA-Public Use
  Company Number: 2006-07-1023

PATIENT
  Age: 44 Year
  Sex: Female
  Weight: 67.1324 kg

DRUGS (8)
  1. PEG-INTRON [Suspect]
     Indication: HEPATITIS C
     Dosage: SC
     Route: 058
     Dates: start: 20060623
  2. REBETOL [Suspect]
     Indication: HEPATITIS C
     Dosage: PO
     Route: 048
     Dates: start: 20060623
  3. AMBIEN [Concomitant]
  4. ESTRATEST [Concomitant]
  5. LORTAB [Concomitant]
  6. NEXIUM [Concomitant]
  7. TYLENOL EXTRA-STRENGTH [Concomitant]
  8. LEXAPRO [Concomitant]

REACTIONS (15)
  - AMNESIA [None]
  - ASTHENIA [None]
  - COUGH [None]
  - DEHYDRATION [None]
  - DIVERTICULITIS [None]
  - DYSPNOEA [None]
  - FEELING COLD [None]
  - MIGRAINE [None]
  - PAIN [None]
  - PANIC ATTACK [None]
  - PYREXIA [None]
  - RASH ERYTHEMATOUS [None]
  - RASH PRURITIC [None]
  - WEIGHT DECREASED [None]
  - WHITE BLOOD CELL COUNT DECREASED [None]
